FAERS Safety Report 5450969-1 (Version None)
Quarter: 2007Q3

REPORT INFORMATION
  Report Type: 
  Country: None (occurrence: None)
  Receive Date: 20070911
  Receipt Date: 20070827
  Transmission Date: 20080115
  Serious: Yes (Death, Disabling)
  Sender: FDA-Public Use
  Company Number: CH-GUERBET-20070010

PATIENT
  Age: 49 Year
  Sex: Male
  Weight: 100 kg

DRUGS (5)
  1. DOTAREM: / MEGLUMINE GADOTERATE [Suspect]
     Indication: ANGIOGRAM
     Dosage: 15 ML, MILLILITRE(S), 1, 1, ; 40, ML MILLILITRE(S), 1, 1
     Route: 042
     Dates: start: 19990311, end: 19990311
  2. DOTAREM: / MEGLUMINE GADOTERATE [Suspect]
     Indication: NUCLEAR MAGNETIC RESONANCE IMAGING
     Dosage: 15 ML, MILLILITRE(S), 1, 1, ; 40, ML MILLILITRE(S), 1, 1
     Route: 042
     Dates: start: 19990311, end: 19990311
  3. DOTAREM: / MEGLUMINE GADOTERATE [Suspect]
     Indication: ANGIOGRAM
     Dosage: 15 ML, MILLILITRE(S), 1, 1, ; 40, ML MILLILITRE(S), 1, 1
     Route: 042
     Dates: start: 19990311, end: 19990311
  4. DOTAREM: / MEGLUMINE GADOTERATE [Suspect]
     Indication: NUCLEAR MAGNETIC RESONANCE IMAGING
     Dosage: 15 ML, MILLILITRE(S), 1, 1, ; 40, ML MILLILITRE(S), 1, 1
     Route: 042
     Dates: start: 19990311, end: 19990311
  5. OMNISCAN [Concomitant]

REACTIONS (18)
  - CATARACT [None]
  - DECUBITUS ULCER [None]
  - DISORIENTATION [None]
  - DRUG WITHDRAWAL SYNDROME [None]
  - EPILEPSY [None]
  - FEMUR FRACTURE [None]
  - FOOT AMPUTATION [None]
  - GENERAL PHYSICAL HEALTH DETERIORATION [None]
  - GROIN ABSCESS [None]
  - INTERVERTEBRAL DISCITIS [None]
  - LOBAR PNEUMONIA [None]
  - LOCALISED INFECTION [None]
  - NEPHROGENIC SYSTEMIC FIBROSIS [None]
  - SEPSIS [None]
  - SOMNOLENCE [None]
  - STAPHYLOCOCCAL INFECTION [None]
  - TOE AMPUTATION [None]
  - TRANSIENT ISCHAEMIC ATTACK [None]
